FAERS Safety Report 8862415 (Version 1)
Quarter: 2012Q4

REPORT INFORMATION
  Report Type: 
  Country: US (occurrence: US)
  Receive Date: 20121026
  Receipt Date: 20121026
  Transmission Date: 20130627
  Serious: Yes (Death, Hospitalization)
  Sender: FDA-Public Use
  Company Number: PHHY2012US095325

PATIENT
  Age: 30 Year
  Sex: Female

DRUGS (6)
  1. CICLOSPORIN [Suspect]
     Indication: RENAL TRANSPLANT
     Dosage: 50 mg, QD
     Route: 048
  2. MYCOPHENOLATE MOFETIL [Suspect]
     Indication: RENAL TRANSPLANT
     Dosage: 500 mg, BID
  3. AZATHIOPRINE [Concomitant]
  4. PREDNISONE [Concomitant]
     Dosage: 5 mg, QD
  5. ENALAPRIL [Concomitant]
     Dosage: 5 mg, QD
  6. NIFEDIPINE [Concomitant]
     Dosage: 10 mg, TID

REACTIONS (7)
  - Sepsis [Fatal]
  - Pneumonia [Unknown]
  - Plasmablastic lymphoma [Unknown]
  - Headache [Unknown]
  - Auricular swelling [Unknown]
  - VIIth nerve paralysis [Unknown]
  - Pallor [Unknown]
